FAERS Safety Report 4715056-6 (Version None)
Quarter: 2005Q3

REPORT INFORMATION
  Report Type: 
  Country: None (occurrence: None)
  Receive Date: 20050715
  Receipt Date: 20041012
  Transmission Date: 20060218
  Serious: Yes (Life-Threatening, Hospitalization, Disabling)
  Sender: FDA-Public Use
  Company Number: US-MERCK-0410USA01626

PATIENT
  Age: 50 Year
  Sex: Male

DRUGS (7)
  1. VIOXX [Suspect]
     Indication: BACK PAIN
     Route: 048
     Dates: start: 19990101, end: 20040801
  2. VIOXX [Suspect]
     Indication: NECK PAIN
     Route: 048
     Dates: start: 19990101, end: 20040801
  3. PLAVIX [Concomitant]
     Route: 065
  4. ALTACE [Concomitant]
     Route: 065
  5. ASPIRIN [Concomitant]
     Route: 065
  6. BEXTRA [Suspect]
     Route: 065
  7. CELEBREX [Suspect]
     Route: 065

REACTIONS (4)
  - CARDIAC DISORDER [None]
  - EMOTIONAL DISORDER [None]
  - HYPOTENSION [None]
  - MYOCARDIAL INFARCTION [None]
